FAERS Safety Report 15253586 (Version 4)
Quarter: 2018Q4

REPORT INFORMATION
  Report Type: Report from Study
  Country: US (occurrence: US)
  Receive Date: 20180808
  Receipt Date: 20181221
  Transmission Date: 20190204
  Serious: Yes (Other)
  Sender: FDA-Public Use
  Company Number: US-ALEXION PHARMACEUTICALS INC.-A201809625

PATIENT
  Sex: Female

DRUGS (2)
  1. SOLIRIS [Suspect]
     Active Substance: ECULIZUMAB
     Indication: MYASTHENIA GRAVIS
     Dosage: UNK
     Route: 065
  2. SOLIRIS [Suspect]
     Active Substance: ECULIZUMAB
     Dosage: UNK
     Route: 065

REACTIONS (10)
  - Respiratory tract infection [Unknown]
  - Cough [Unknown]
  - Pruritus [Unknown]
  - Nausea [Unknown]
  - Eyelid ptosis [Unknown]
  - Headache [Unknown]
  - Nasal congestion [Unknown]
  - Visual impairment [Unknown]
  - Dysphagia [Unknown]
  - Myalgia [Unknown]
